FAERS Safety Report 7218978-X (Version None)
Quarter: 2011Q1

REPORT INFORMATION
  Report Type: 
  Country: None (occurrence: None)
  Receive Date: 20110111
  Receipt Date: 20110109
  Transmission Date: 20110831
  Serious: Yes (Hospitalization)
  Sender: FDA-Public Use
  Company Number: US-BIOGENIDEC-2010BI044429

PATIENT
  Sex: Female

DRUGS (8)
  1. DETROL LA [Concomitant]
     Route: 048
  2. CALCIUM [Concomitant]
  3. AVONEX [Suspect]
     Indication: MULTIPLE SCLEROSIS
     Route: 030
     Dates: start: 20071127, end: 20090325
  4. PROVIGIL [Concomitant]
  5. PAXIL [Concomitant]
     Route: 048
  6. BACLOFEN [Concomitant]
  7. WELLBUTRIN SR [Concomitant]
     Route: 048
  8. VITAMIN D [Concomitant]

REACTIONS (4)
  - GASTROINTESTINAL DISORDER POSTOPERATIVE [None]
  - INTESTINAL OPERATION [None]
  - GASTROINTESTINAL DISORDER [None]
  - ASTHENIA [None]
